FAERS Safety Report 25155889 (Version 2)
Quarter: 2025Q2

REPORT INFORMATION
  Report Type: Spontaneous
  Country: DE (occurrence: DE)
  Receive Date: 20250403
  Receipt Date: 20250426
  Transmission Date: 20250717
  Serious: Yes (Hospitalization)
  Sender: ABBVIE
  Company Number: DE-ABBVIE-6203969

PATIENT
  Age: 72 Year
  Sex: Female

DRUGS (1)
  1. UPADACITINIB [Suspect]
     Active Substance: UPADACITINIB
     Indication: Giant cell arteritis
     Route: 048

REACTIONS (12)
  - Hospitalisation [Unknown]
  - Osteoarthritis [Unknown]
  - Chondrocalcinosis [Unknown]
  - Rheumatoid arthritis [Unknown]
  - Polymyalgia rheumatica [Unknown]
  - Pain in extremity [Unknown]
  - Malaise [Unknown]
  - Weight decreased [Unknown]
  - Bursitis [Unknown]
  - Joint effusion [Unknown]
  - Greater trochanteric pain syndrome [Unknown]
  - Tenosynovitis [Unknown]
